FAERS Safety Report 7798880-5 (Version None)
Quarter: 2011Q4

REPORT INFORMATION
  Report Type: 
  Country: None (occurrence: None)
  Receive Date: 20111005
  Receipt Date: 20111005
  Transmission Date: 20120403
  Serious: Yes (Hospitalization)
  Sender: FDA-Public Use
  Company Number: None

PATIENT
  Age: 58 Year
  Sex: Male
  Weight: 37 kg

DRUGS (2)
  1. INSULIN [Suspect]
     Indication: TYPE 1 DIABETES MELLITUS
     Dosage: 6 UNITS TID SQ
     Route: 058
     Dates: start: 20110825, end: 20110924
  2. INSULIN [Suspect]
     Indication: TYPE 1 DIABETES MELLITUS
     Dosage: 41 UNITS EVERY DAY SQ
     Route: 058
     Dates: start: 20110825, end: 20110924

REACTIONS (2)
  - WRONG TECHNIQUE IN DRUG USAGE PROCESS [None]
  - HYPOGLYCAEMIA [None]
